FAERS Safety Report 5437825-X (Version None)
Quarter: 2007Q3

REPORT INFORMATION
  Report Type: 
  Country: None (occurrence: None)
  Receive Date: 20070831
  Receipt Date: 20070829
  Transmission Date: 20080115
  Serious: Yes (Hospitalization, Other)
  Sender: FDA-Public Use
  Company Number: CH-ASTRAZENECA-2007PK01789

PATIENT
  Age: 246 Month
  Sex: Female
  Weight: 85 kg

DRUGS (3)
  1. SEROQUEL [Suspect]
     Indication: SCHIZOPHRENIA, PARANOID TYPE
     Route: 048
     Dates: start: 20051001
  2. SEROQUEL [Suspect]
     Route: 048
     Dates: start: 20061001
  3. TOPAMAX [Concomitant]
     Indication: AFFECTIVE DISORDER
     Dosage: 50 MG TO 150 MG
     Dates: start: 20060101

REACTIONS (1)
  - BENIGN INTRACRANIAL HYPERTENSION [None]
